FAERS Safety Report 4718392-2 (Version None)
Quarter: 2005Q3

REPORT INFORMATION
  Report Type: 
  Country: None (occurrence: None)
  Receive Date: 20050719
  Receipt Date: 20050201
  Transmission Date: 20060218
  Serious: Yes (Life-Threatening, Hospitalization, Other)
  Sender: FDA-Public Use
  Company Number: 2005026144

PATIENT
  Age: 69 Year
  Sex: Female

DRUGS (12)
  1. CELEBREX [Suspect]
     Indication: ILL-DEFINED DISORDER
     Dosage: 400 MG (200 MG, 2 IN 1 D), ORAL
     Route: 048
  2. OXYBUTYNIN CHLORIDE [Suspect]
     Indication: HYPERTONIC BLADDER
     Dates: start: 20041010
  3. LEVOTHYROXINE SODIUM [Concomitant]
  4. FUROSEMIDE [Concomitant]
  5. METFORMIN HYDROCHLORIDE/ROSIGLITAZONE (METFORMIN HYDROCHLORIDE, ROSIGL [Concomitant]
  6. ISOSORBIDE MONONITRATE [Concomitant]
  7. ISOSORBIDE (ISOSORBIDE) [Concomitant]
  8. SERTRALINE HCL [Concomitant]
  9. WARFARIN SODIUM [Concomitant]
  10. PYRIDOXINE HCL [Concomitant]
  11. CALCIUM (CALCIUM) [Concomitant]
  12. ASPIRIN [Concomitant]

REACTIONS (3)
  - CARDIAC FAILURE CONGESTIVE [None]
  - CHEST PAIN [None]
  - DYSPNOEA [None]
